FAERS Safety Report 10388736 (Version 1)
Quarter: 2014Q1

REPORT INFORMATION
  Report Type: Spontaneous
  Country: US (occurrence: None)
  Receive Date: 20140306
  Receipt Date: 20140306
  Transmission Date: 20141002
  Serious: Yes (Hospitalization)
  Sender: FDA-Public Use
  Company Number: 163-21880-13124183

PATIENT
  Age: 74 Year
  Sex: Male

DRUGS (23)
  1. REVLIMID (LENALIDOMIDE) (15 MILLIGRAM, CAPSULES) [Suspect]
     Indication: PLASMA CELL MYELOMA
     Route: 048
     Dates: start: 20130926
  2. COUMADIN (WARFARIN SODIUM) [Concomitant]
  3. DEXAMETHASONE (DEXAMETHASONE) [Concomitant]
  4. ACYCLOVIR (ACICLOVIR) (TABLETS) [Concomitant]
  5. ALBUTEROL/HFA (SALBUTAMOL) (AEROSOL FOR INHALATION) [Concomitant]
  6. COLCHICINE (COLCHICINE) (TABLETS) [Concomitant]
  7. COLCHICINE (COLCHICINE) (TABLETS) [Concomitant]
  8. FINASTERIDE (FINASTERIDE) (TABLETS) [Concomitant]
  9. FLUTICASONE (FLUTICASONE) (AEROSOL FOR INHALATION) [Concomitant]
  10. FISH OIL (FISH OIL) (CAPSULES) [Concomitant]
  11. HYDROCODONE/ACETAMINOPHEN (REMEDEINE) (TABLETS) [Concomitant]
  12. IPRATROPIUM-ALBUTEROL (COMBIVENT) (SOLUTION) [Concomitant]
  13. LEVOFLOXACIN (LEVOFLOXACIN) (TABLETS) [Concomitant]
  14. MAGNESIUM OXIDE (MAGNESIUM OXIDE) (TABLETS) [Concomitant]
  15. METOPROLOL (METOPROLOL) [Concomitant]
  16. MIRALAX (MACROGOL) (POWDER) [Concomitant]
  17. NEURONTIN (GABAPENTIN) (CAPSULES) [Concomitant]
  18. NITROGLYCERIN (GLYCERYL TRINITRATE) (TABLETS) [Concomitant]
  19. OXYCONTIN (OXYCODONE HYDROCHLORIDE) [Concomitant]
  20. POTASSIUM CHLORIDE (POTASSIUM CHLORIDE) [Concomitant]
  21. SPIRIVA(TIOTROPIUM BROMIDE) (CAPSULES) [Concomitant]
  22. TAMSULOSIN (TAMSULOSIN) (SUSTAINED-RELEASE CAPSULE) [Concomitant]
  23. TORSEMIDE (TORASEMIDE) (TABLETS) [Concomitant]

REACTIONS (7)
  - Pneumonitis [None]
  - Lung infiltration [None]
  - Pyrexia [None]
  - Fatigue [None]
  - Diarrhoea [None]
  - Bronchitis [None]
  - Rash [None]
